FAERS Safety Report 10648706 (Version 1)
Quarter: 2014Q4

REPORT INFORMATION
  Report Type: Spontaneous
  Country: US (occurrence: None)
  Receive Date: 20141210
  Receipt Date: 20141210
  Transmission Date: 20150529
  Serious: Yes (Other)
  Sender: FDA-Public Use
  Company Number: 54973 AE1582

PATIENT
  Age: 11 Month
  Sex: Male

DRUGS (2)
  1. IBUPROFEN. [Concomitant]
     Active Substance: IBUPROFEN
  2. BABY TEETHING [Suspect]
     Active Substance: ARABICA COFFEE BEAN\ATROPA BELLADONNA\CALCIUM PHOSPHATE\CHAMOMILE
     Indication: TEETHING
     Dosage: 3 TABS CRUSHED BY MOUTH

REACTIONS (6)
  - Dyspnoea [None]
  - Ear infection [None]
  - Respiratory rate increased [None]
  - Respiratory syncytial virus infection [None]
  - Candida infection [None]
  - Lethargy [None]

NARRATIVE: CASE EVENT DATE: 20141117
